FAERS Safety Report 26071791 (Version 1)
Quarter: 2025Q4

REPORT INFORMATION
  Report Type: Report from Study
  Country: IN (occurrence: IN)
  Receive Date: 20251120
  Receipt Date: 20251120
  Transmission Date: 20260118
  Serious: Yes (Hospitalization, Other)
  Sender: TAKEDA
  Company Number: IN-TAKEDA-2025TUS102929

PATIENT
  Age: 54 Year
  Sex: Female

DRUGS (1)
  1. VEDOLIZUMAB [Suspect]
     Active Substance: VEDOLIZUMAB
     Indication: Crohn^s disease
     Dosage: 300 MILLIGRAM

REACTIONS (8)
  - Haematochezia [Unknown]
  - Haematemesis [Unknown]
  - Diarrhoea [Unknown]
  - Melaena [Unknown]
  - Chest pain [Unknown]
  - Dyspepsia [Unknown]
  - Nausea [Unknown]
  - Pyrexia [Unknown]
